FAERS Safety Report 17052174 (Version 2)
Quarter: 2019Q4

REPORT INFORMATION
  Report Type: Spontaneous
  Country: JP (occurrence: JP)
  Receive Date: 20191120
  Receipt Date: 20191202
  Transmission Date: 20200122
  Serious: Yes (Life-Threatening, Hospitalization, Other)
  Sender: FDA-Public Use
  Company Number: JP-AMGEN-JPNSP2019154922

PATIENT
  Age: 78 Year
  Sex: Male
  Weight: 45 kg

DRUGS (4)
  1. GONAX [Concomitant]
     Active Substance: DEGARELIX
     Dosage: 240 MILLIGRAM, QD
     Route: 058
     Dates: start: 20160215, end: 20160215
  2. GONAX [Concomitant]
     Active Substance: DEGARELIX
     Dosage: 80 MILLIGRAM, QD
     Route: 058
  3. RANMARK [Suspect]
     Active Substance: DENOSUMAB
     Indication: METASTASES TO BONE
     Dosage: 120 MILLIGRAM, Q4WK
     Route: 058
     Dates: start: 20160316
  4. GONAX [Concomitant]
     Active Substance: DEGARELIX
     Dosage: 80 MILLIGRAM, QD
     Route: 058

REACTIONS (3)
  - Sepsis [Recovering/Resolving]
  - Renal failure [Recovered/Resolved]
  - Osteonecrosis of jaw [Recovered/Resolved]

NARRATIVE: CASE EVENT DATE: 2019
